FAERS Safety Report 6577988-6 (Version None)
Quarter: 2010Q1

REPORT INFORMATION
  Report Type: 
  Country: None (occurrence: None)
  Receive Date: 20100211
  Receipt Date: 20100204
  Transmission Date: 20100710
  Serious: Yes (Other)
  Sender: FDA-Public Use
  Company Number: BR-BRISTOL-MYERS SQUIBB COMPANY-14966816

PATIENT
  Age: 52 Year
  Sex: Female
  Weight: 72 kg

DRUGS (5)
  1. APROZIDE [Suspect]
     Indication: HYPERTENSION
     Dosage: FORM=TABS;1TAB
     Route: 048
     Dates: start: 20081001
  2. ACETYLSALICYLIC ACID [Concomitant]
     Dosage: 1 DF= 1 TABS; 2 TABS OR 2 TO 3 WEEKS
     Route: 048
     Dates: start: 20080701
  3. CLOPIDOGREL BISULFATE [Concomitant]
     Indication: PROPHYLAXIS
     Dosage: 75MG
     Route: 048
     Dates: start: 20080701
  4. ATENOLOL [Concomitant]
     Indication: HYPERTENSION
     Dosage: FORM=TABS,50MG
     Route: 048
     Dates: start: 20030101
  5. LIPITOR [Concomitant]
     Indication: BLOOD CHOLESTEROL
     Dosage: 1 DF= 0.5 TABS
     Route: 048
     Dates: start: 20081001

REACTIONS (1)
  - WEIGHT INCREASED [None]
